FAERS Safety Report 12448208 (Version 1)
Quarter: 2016Q2

REPORT INFORMATION
  Report Type: Spontaneous
  Country: None (occurrence: DO)
  Receive Date: 20160608
  Receipt Date: 20160608
  Transmission Date: 20160815
  Serious: Yes (Other)
  Sender: FDA-Public Use
  Company Number: DO-MERCK KGAA-1053533

PATIENT

DRUGS (1)
  1. NOVOTHYROX [Suspect]
     Active Substance: LEVOTHYROXINE SODIUM

REACTIONS (6)
  - Anti-thyroid antibody positive [None]
  - Blood thyroid stimulating hormone decreased [None]
  - Thyroid mass [None]
  - Drug ineffective [None]
  - Thyroxine free decreased [None]
  - Anger [None]
